FAERS Safety Report 7170913-9 (Version None)
Quarter: 2010Q4

REPORT INFORMATION
  Report Type: 
  Country: None (occurrence: None)
  Receive Date: 20101217
  Receipt Date: 20101215
  Transmission Date: 20110411
  Serious: Yes (Life-Threatening, Hospitalization)
  Sender: FDA-Public Use
  Company Number: FI-B.I. PHARMACEUTICALS,INC./RIDGEFIELD-2010-SW-00400SF

PATIENT
  Sex: Male

DRUGS (13)
  1. SPIRIVA RESPIMAT [Suspect]
     Indication: CHRONIC OBSTRUCTIVE PULMONARY DISEASE
     Dosage: 5 MCG
     Route: 055
     Dates: start: 20101105, end: 20101108
  2. VENTOLIN DISKUS [Suspect]
     Indication: ASTHMA
     Dosage: 1 PUF
     Route: 055
  3. VENTOLIN DISKUS [Suspect]
     Indication: CHRONIC OBSTRUCTIVE PULMONARY DISEASE
  4. ZOLPIDEM TARTRATE [Concomitant]
     Indication: INSOMNIA
     Dosage: 0,5-1 TABLET ONCE DAILY
     Route: 048
  5. PANCOD [Concomitant]
     Indication: PAIN
     Dosage: 1-2X1-3
     Route: 048
  6. MAREVAN [Concomitant]
     Indication: THROMBOSIS PROPHYLAXIS
     Dosage: ACCORDING TO INSTRUCTION
     Route: 048
  7. DIUREX MITE [Concomitant]
     Indication: DIURETIC THERAPY
     Dosage: 1 ANZ
     Route: 048
  8. FURESIS [Concomitant]
     Indication: HYPERTENSION
     Dosage: 40 MG
     Route: 048
  9. FURESIS [Concomitant]
     Indication: DIURETIC THERAPY
  10. EXFORGE [Concomitant]
     Indication: HYPERTENSION
     Dosage: 1 ANZ
     Route: 048
  11. BISOPROLOL RATIOPHARM [Concomitant]
     Indication: CARDIAC DISORDER
     Dosage: 0,5-1X2
     Route: 048
  12. BISOPROLOL RATIOPHARM [Concomitant]
     Indication: HYPERTENSION
  13. SIMVASTATIN RATIOPHARM [Concomitant]
     Indication: BLOOD CHOLESTEROL
     Dosage: 20 MG
     Route: 048

REACTIONS (1)
  - ARRHYTHMIA [None]
